FAERS Safety Report 25940526 (Version 1)
Quarter: 2025Q4

REPORT INFORMATION
  Report Type: Spontaneous
  Country: GB (occurrence: GB)
  Receive Date: 20251020
  Receipt Date: 20251020
  Transmission Date: 20260118
  Serious: Yes (Other)
  Sender: MYLAN
  Company Number: None

PATIENT
  Age: 47 Year
  Sex: Female
  Weight: 60 kg

DRUGS (4)
  1. CANDESARTAN [Suspect]
     Active Substance: CANDESARTAN
     Indication: Hypertension
     Dosage: 4 MILLIGRAM, QD
     Dates: start: 2018, end: 202508
  2. CANDESARTAN [Suspect]
     Active Substance: CANDESARTAN
     Dosage: 4 MILLIGRAM, QD
     Route: 065
     Dates: start: 2018, end: 202508
  3. CANDESARTAN [Suspect]
     Active Substance: CANDESARTAN
     Dosage: 4 MILLIGRAM, QD
     Route: 065
     Dates: start: 2018, end: 202508
  4. CANDESARTAN [Suspect]
     Active Substance: CANDESARTAN
     Dosage: 4 MILLIGRAM, QD
     Dates: start: 2018, end: 202508

REACTIONS (3)
  - Neck pain [Recovered/Resolved]
  - Arthralgia [Recovered/Resolved]
  - Back pain [Recovered/Resolved]

NARRATIVE: CASE EVENT DATE: 20190101
